FAERS Safety Report 23367507 (Version 1)
Quarter: 2024Q1

REPORT INFORMATION
  Report Type: Spontaneous
  Country: US (occurrence: US)
  Receive Date: 20240104
  Receipt Date: 20240104
  Transmission Date: 20240410
  Serious: No
  Sender: FDA-Public Use
  Company Number: US-INCYTE CORPORATION-2023IN013414

PATIENT

DRUGS (2)
  1. JAKAFI [Suspect]
     Active Substance: RUXOLITINIB
     Indication: Myelofibrosis
     Dosage: 10MG EVERY MORNING, 5MG EVERY EVENING
     Route: 048
     Dates: start: 20231130
  2. JAKAFI [Suspect]
     Active Substance: RUXOLITINIB
     Dosage: 10MG EVERY MORNING, 5MG EVERY EVENING
     Route: 048
     Dates: start: 20231130

REACTIONS (3)
  - Nasopharyngitis [Unknown]
  - Petechiae [Unknown]
  - Pain of skin [Unknown]
